FAERS Safety Report 23507585 (Version 2)
Quarter: 2024Q2

REPORT INFORMATION
  Report Type: Spontaneous
  Country: US (occurrence: US)
  Receive Date: 20240209
  Receipt Date: 20240522
  Transmission Date: 20240716
  Serious: No
  Sender: FDA-Public Use
  Company Number: US-SA-SAC20240207001494

PATIENT
  Age: 68 Year
  Sex: Male

DRUGS (2)
  1. REZUROCK [Suspect]
     Active Substance: BELUMOSUDIL
     Indication: Graft versus host disease
     Dosage: 200 MG, BID
     Route: 048
     Dates: start: 20240116
  2. MINOCYCLINE [Concomitant]
     Active Substance: MINOCYCLINE HYDROCHLORIDE
     Indication: Infected skin ulcer
     Dosage: UNK

REACTIONS (11)
  - White blood cell count decreased [Unknown]
  - Immune system disorder [Unknown]
  - Skin discolouration [Unknown]
  - Platelet count abnormal [Unknown]
  - Oedema [Unknown]
  - Asthenia [Unknown]
  - General physical health deterioration [Unknown]
  - Decreased activity [Unknown]
  - Neutrophil count decreased [Unknown]
  - Product dose omission issue [Unknown]
  - Inappropriate schedule of product administration [Unknown]

NARRATIVE: CASE EVENT DATE: 20240101
